FAERS Safety Report 4325189-4 (Version None)
Quarter: 2004Q1

REPORT INFORMATION
  Report Type: 
  Country: None (occurrence: None)
  Receive Date: 20040323
  Receipt Date: 20040202
  Transmission Date: 20041129
  Serious: No
  Sender: FDA-Public Use
  Company Number: USA040258289

PATIENT
  Age: 43 Year
  Sex: Male
  Weight: 95 kg

DRUGS (1)
  1. CIALIS [Suspect]
     Dosage: 15 MG
     Dates: start: 20040110, end: 20040120

REACTIONS (1)
  - DRUG INEFFECTIVE [None]
